FAERS Safety Report 7952713-2 (Version None)
Quarter: 2011Q4

REPORT INFORMATION
  Report Type: 
  Country: None (occurrence: None)
  Receive Date: 20111201
  Receipt Date: 20111121
  Transmission Date: 20120403
  Serious: No
  Sender: FDA-Public Use
  Company Number: US-B.I. PHARMACEUTICALS,INC./RIDGEFIELD-2011-BP-26628BP

PATIENT
  Sex: Female

DRUGS (7)
  1. TRICOR [Concomitant]
     Indication: BLOOD CHOLESTEROL
  2. QUININE [Concomitant]
  3. LEVOTHYROXINE SODIUM [Concomitant]
     Indication: THYROID DISORDER
  4. NOVOLOG MIX 70/30 [Concomitant]
     Indication: DIABETES MELLITUS
  5. PREVACID [Concomitant]
     Indication: GASTROOESOPHAGEAL REFLUX DISEASE
  6. TOVIAZ [Concomitant]
     Indication: BLADDER DISORDER
  7. PRADAXA [Suspect]
     Indication: ATRIAL FIBRILLATION
     Dosage: 300 MG
     Route: 048
     Dates: start: 20110901

REACTIONS (1)
  - MUSCLE SPASMS [None]
